FAERS Safety Report 24762118 (Version 2)
Quarter: 2025Q3

REPORT INFORMATION
  Report Type: Spontaneous
  Country: US (occurrence: US)
  Receive Date: 20241221
  Receipt Date: 20250809
  Transmission Date: 20251020
  Serious: Yes (Death, Other)
  Sender: ALEXION PHARMACEUTICALS
  Company Number: US-ASTRAZENECA-202412USA015630US

PATIENT
  Age: 62 Year
  Sex: Female

DRUGS (9)
  1. OMEPRAZOLE [Suspect]
     Active Substance: OMEPRAZOLE
  2. ACETAMINOPHEN [Suspect]
     Active Substance: ACETAMINOPHEN
  3. METOPROLOL TARTRATE [Suspect]
     Active Substance: METOPROLOL TARTRATE
  4. LOSARTAN [Suspect]
     Active Substance: LOSARTAN
  5. MECLIZINE [Suspect]
     Active Substance: MECLIZINE HYDROCHLORIDE
  6. KETOROLAC [Suspect]
     Active Substance: KETOROLAC TROMETHAMINE
  7. SPIRONOLACTONE [Suspect]
     Active Substance: SPIRONOLACTONE
  8. ALCOHOL [Suspect]
     Active Substance: ALCOHOL
  9. ONDANSETRON [Suspect]
     Active Substance: ONDANSETRON

REACTIONS (2)
  - Toxicity to various agents [Fatal]
  - Completed suicide [Fatal]
